FAERS Safety Report 20113617 (Version 1)
Quarter: 2021Q4

REPORT INFORMATION
  Report Type: Spontaneous
  Country: FR (occurrence: None)
  Receive Date: 20211125
  Receipt Date: 20211125
  Transmission Date: 20220303
  Serious: Yes (Other)
  Sender: FDA-Public Use
  Company Number: 2021A820955

PATIENT
  Age: 80 Year
  Sex: Female

DRUGS (2)
  1. OSIMERTINIB [Suspect]
     Active Substance: OSIMERTINIB
     Indication: Non-small cell lung cancer
     Dosage: UNKNOWN DOSE
     Route: 048
     Dates: start: 202003
  2. OSIMERTINIB [Suspect]
     Active Substance: OSIMERTINIB
     Indication: EGFR gene mutation
     Dosage: UNKNOWN DOSE
     Route: 048
     Dates: start: 202003

REACTIONS (2)
  - Malignant neoplasm progression [Unknown]
  - EGFR gene mutation [Unknown]
